FAERS Safety Report 9189458 (Version 4)
Quarter: 2013Q4

REPORT INFORMATION
  Report Type: Spontaneous
  Country: US (occurrence: US)
  Receive Date: 20130326
  Receipt Date: 20131011
  Transmission Date: 20140711
  Serious: Yes (Death)
  Sender: FDA-Public Use
  Company Number: US-CELGENEUS-163-POMAL-13033398

PATIENT
  Age: 63 Year
  Sex: Male

DRUGS (9)
  1. POMALYST [Suspect]
     Indication: PLASMA CELL MYELOMA
     Dosage: 3 MILLIGRAM
     Route: 048
     Dates: start: 20130227
  2. POMALYST [Suspect]
     Dosage: 3 MILLIGRAM
     Route: 048
     Dates: start: 20130317, end: 20130319
  3. GABAPENTIN [Concomitant]
     Indication: NEUROPATHY PERIPHERAL
     Dosage: 1200 MILLIGRAM
     Route: 065
     Dates: end: 20130319
  4. HYDROCORTISONE [Concomitant]
     Indication: HYPERTENSION
     Dosage: 20 MILLIGRAM
     Route: 065
     Dates: end: 20130319
  5. METPROLOL [Concomitant]
     Indication: TACHYCARDIA
     Dosage: 25 MILLIGRAM
     Route: 065
     Dates: end: 20130319
  6. OMEPRAZOLE [Concomitant]
     Indication: GASTROOESOPHAGEAL REFLUX DISEASE
     Dosage: 20 MILLIGRAM
     Route: 065
     Dates: end: 20130319
  7. CIPROFLOXACIN [Concomitant]
     Indication: PROPHYLAXIS
     Dosage: 1500 MILLIGRAM
     Route: 065
     Dates: start: 20130313, end: 20130319
  8. ASPIRIN [Concomitant]
     Indication: PRODUCT USED FOR UNKNOWN INDICATION
     Route: 065
  9. PLATELET [Concomitant]
     Indication: PRODUCT USED FOR UNKNOWN INDICATION
     Dosage: 1 UNIT
     Route: 041
     Dates: start: 20130318

REACTIONS (2)
  - Haemorrhage intracranial [Fatal]
  - Plasma cell myeloma [Fatal]
